FAERS Safety Report 10802614 (Version 1)
Quarter: 2015Q1

REPORT INFORMATION
  Report Type: Spontaneous
  Country: US (occurrence: US)
  Receive Date: 20150217
  Receipt Date: 20150217
  Transmission Date: 20150721
  Serious: No
  Sender: FDA-Public Use
  Company Number: US-BRACCO-010826

PATIENT
  Sex: Male

DRUGS (5)
  1. LIDOCAINE. [Concomitant]
     Active Substance: LIDOCAINE
     Indication: ARTHROGRAM
     Dosage: 2%
     Route: 058
     Dates: start: 201404, end: 201404
  2. MAGNEVIST [Concomitant]
     Active Substance: GADOPENTETATE DIMEGLUMINE
     Indication: ARTHROGRAM
     Route: 014
     Dates: start: 201404, end: 201404
  3. NORMAL SALINE [Concomitant]
     Active Substance: SODIUM CHLORIDE
     Route: 014
     Dates: start: 201404, end: 201404
  4. ISOVUE-M [Suspect]
     Active Substance: IOPAMIDOL
     Indication: ARTHROGRAM
     Dosage: 1-2 ML ADMINISTERED
     Route: 014
     Dates: start: 201404, end: 201404
  5. LIDOCAINE. [Concomitant]
     Active Substance: LIDOCAINE
     Dosage: 2%
     Route: 030
     Dates: start: 201404, end: 201404

REACTIONS (1)
  - Hypoaesthesia oral [Recovered/Resolved]

NARRATIVE: CASE EVENT DATE: 201404
